FAERS Safety Report 6831004-7 (Version None)
Quarter: 2010Q3

REPORT INFORMATION
  Report Type: 
  Country: None (occurrence: None)
  Receive Date: 20100712
  Receipt Date: 20100616
  Transmission Date: 20110219
  Serious: Yes (Other)
  Sender: FDA-Public Use
  Company Number: US-SANOFI-AVENTIS-2010SA022530

PATIENT
  Sex: Female

DRUGS (6)
  1. SOLOSTAR [Suspect]
     Indication: DIABETES MELLITUS
  2. SOLOSTAR [Suspect]
  3. SOLOSTAR [Suspect]
  4. LANTUS [Suspect]
     Indication: DIABETES MELLITUS
     Route: 058
  5. LANTUS [Suspect]
     Route: 058
  6. LANTUS [Suspect]
     Route: 058

REACTIONS (1)
  - DEVICE MALFUNCTION [None]
